FAERS Safety Report 7071279-5 (Version None)
Quarter: 2010Q4

REPORT INFORMATION
  Report Type: 
  Country: None (occurrence: None)
  Receive Date: 20101029
  Receipt Date: 20101021
  Transmission Date: 20110411
  Serious: Yes (Other)
  Sender: FDA-Public Use
  Company Number: US-SANOFI-AVENTIS-2010SA065456

PATIENT
  Sex: Male
  Weight: 81.63 kg

DRUGS (5)
  1. PLAVIX [Suspect]
     Indication: STENT PLACEMENT
     Route: 065
     Dates: start: 20041101
  2. LIPITOR [Suspect]
     Dates: start: 20041101
  3. ASPIRIN [Suspect]
     Dates: start: 20041101
  4. CALCIUM CHANNEL BLOCKERS [Concomitant]
  5. VITAMINS [Concomitant]

REACTIONS (2)
  - MYELODYSPLASTIC SYNDROME [None]
  - THROMBOCYTOPENIA [None]
